FAERS Safety Report 8926297 (Version 3)
Quarter: 2013Q4

REPORT INFORMATION
  Report Type: Report from Study
  Country: MX (occurrence: MX)
  Receive Date: 20121126
  Receipt Date: 20131004
  Transmission Date: 20140711
  Serious: Yes (Other)
  Sender: FDA-Public Use
  Company Number: PHHY2012MX096085

PATIENT
  Age: 12 Year
  Sex: Male

DRUGS (3)
  1. SANDIMMUN NEORAL [Suspect]
     Indication: NEPHROTIC SYNDROME
     Dosage: 2 DF, DAILY
     Route: 048
     Dates: start: 200612
  2. PREDNISONE [Concomitant]
     Indication: RENAL IMPAIRMENT
     Dates: start: 2008
  3. PREDNISONE [Concomitant]
     Dates: start: 201002

REACTIONS (8)
  - Stress [Recovered/Resolved]
  - Abnormal behaviour [Recovered/Resolved]
  - Hallucination, auditory [Recovered/Resolved]
  - Protein urine present [Recovered/Resolved]
  - Urinary nitrogen increased [Recovered/Resolved]
  - Blood uric acid increased [Unknown]
  - Pharyngitis [Recovered/Resolved]
  - Pyrexia [Recovered/Resolved]
